FAERS Safety Report 21348730 (Version 1)
Quarter: 2022Q3

REPORT INFORMATION
  Report Type: Spontaneous
  Country: RU (occurrence: RU)
  Receive Date: 20220919
  Receipt Date: 20220919
  Transmission Date: 20221027
  Serious: Yes (Hospitalization, Other)
  Sender: FDA-Public Use
  Company Number: RU-MLMSERVICE-20220906-3733959-1

PATIENT
  Age: 9 Year
  Sex: Female

DRUGS (1)
  1. TACROLIMUS [Suspect]
     Active Substance: TACROLIMUS
     Indication: Immunosuppressant drug therapy

REACTIONS (4)
  - Streptococcal sepsis [Recovered/Resolved]
  - Cholestasis [Recovered/Resolved]
  - Zoonotic bacterial infection [Recovered/Resolved]
  - Immunosuppressant drug level increased [Recovered/Resolved]
